FAERS Safety Report 6355727-1 (Version None)
Quarter: 2009Q3

REPORT INFORMATION
  Report Type: 
  Country: None (occurrence: None)
  Receive Date: 20090910
  Receipt Date: 20090901
  Transmission Date: 20100115
  Serious: Yes (Death)
  Sender: FDA-Public Use
  Company Number: GXKR2009GB09769

PATIENT
  Age: 94 Year
  Sex: Female

DRUGS (7)
  1. WARFARIN SODIUM [Suspect]
     Indication: ATRIAL FIBRILLATION
     Dosage: ORAL
     Route: 048
     Dates: end: 20090427
  2. ALLOPURINOL [Concomitant]
  3. AMILORIDE (AMILORIDE) [Concomitant]
  4. DIGOXIN [Concomitant]
  5. FUROSEMIDE [Concomitant]
  6. ISOTARD XL (ISOSORBIDE MONONITRATE) [Concomitant]
  7. TRAMADOL HCL [Concomitant]

REACTIONS (1)
  - SUBDURAL HAEMATOMA [None]
